FAERS Safety Report 5580934-5 (Version None)
Quarter: 2007Q4

REPORT INFORMATION
  Report Type: 
  Country: None (occurrence: None)
  Receive Date: 20071227
  Receipt Date: 20071213
  Transmission Date: 20080405
  Serious: Yes (Death, Life-Threatening)
  Sender: FDA-Public Use
  Company Number: CLOF-10785

PATIENT
  Age: 70 Year
  Sex: Female

DRUGS (2)
  1. CLOFARABINE AND/OR ARA-C (CODE NOT BROKEN) SOLUTION FOR INFUSION [Suspect]
     Indication: MYELOID LEUKAEMIA
     Dosage: BLINDED INFORMATION WITHHELD
     Dates: start: 20071113, end: 20071117
  2. CYTARABINE [Suspect]
     Indication: MYELOID LEUKAEMIA
     Dosage: 1600 MGG/M2 X5DAY, INTRAVENOUS
     Route: 042
     Dates: start: 20071113, end: 20071117

REACTIONS (5)
  - ACUTE RESPIRATORY FAILURE [None]
  - BACTERIAL SEPSIS [None]
  - FEBRILE NEUTROPENIA [None]
  - PULMONARY ALVEOLAR HAEMORRHAGE [None]
  - SEPTIC SHOCK [None]
